FAERS Safety Report 22307757 (Version 1)
Quarter: 2023Q2

REPORT INFORMATION
  Report Type: Spontaneous
  Country: US (occurrence: None)
  Receive Date: 20230511
  Receipt Date: 20230511
  Transmission Date: 20230721
  Serious: No
  Sender: FDA-Public Use
  Company Number: US-ROCHE-3152196

PATIENT
  Age: 39 Year
  Sex: Male
  Weight: 66.284 kg

DRUGS (1)
  1. OCREVUS [Suspect]
     Active Substance: OCRELIZUMAB
     Indication: Multiple sclerosis
     Route: 042
     Dates: start: 20170706

REACTIONS (2)
  - Insomnia [Unknown]
  - Mood swings [Unknown]

NARRATIVE: CASE EVENT DATE: 20220701
